FAERS Safety Report 15640692 (Version 1)
Quarter: 2018Q4

REPORT INFORMATION
  Report Type: Spontaneous
  Country: US (occurrence: US)
  Receive Date: 20181120
  Receipt Date: 20181120
  Transmission Date: 20190205
  Serious: No
  Sender: FDA-Public Use
  Company Number: US-MAYNE PHARMA-2018MYN000146

PATIENT

DRUGS (4)
  1. CORTISONE [Concomitant]
     Active Substance: CORTISONE\HYDROCORTISONE
     Indication: PRODUCT USED FOR UNKNOWN INDICATION
     Dosage: UNK
  2. ERRIN [Suspect]
     Active Substance: NORETHINDRONE
     Indication: HYPERTENSION
  3. ERRIN [Suspect]
     Active Substance: NORETHINDRONE
     Indication: MUSCLE SPASMS
     Dosage: 0.35 MG, QD
     Route: 048
     Dates: start: 201706, end: 20171226
  4. HYZAAR [Concomitant]
     Active Substance: HYDROCHLOROTHIAZIDE\LOSARTAN POTASSIUM
     Indication: HYPERTENSION
     Dosage: UNK

REACTIONS (3)
  - Product use in unapproved indication [Unknown]
  - Rash [Not Recovered/Not Resolved]
  - Alopecia [Not Recovered/Not Resolved]
